FAERS Safety Report 18139343 (Version 1)
Quarter: 2020Q3

REPORT INFORMATION
  Report Type: Spontaneous
  Country: DE (occurrence: DE)
  Receive Date: 20200812
  Receipt Date: 20200812
  Transmission Date: 20201103
  Serious: Yes (Hospitalization)
  Sender: FDA-Public Use
  Company Number: DE-ALLERGAN-2029929US

PATIENT
  Sex: Male

DRUGS (6)
  1. DEX UNK [Suspect]
     Active Substance: UNSPECIFIED INGREDIENT
     Indication: PRODUCT USED FOR UNKNOWN INDICATION
     Dosage: UNK
  2. SORTIS [Concomitant]
     Active Substance: ATORVASTATIN
     Dosage: 20 MG, QPM, 0?0?1?0 ALTERNATING WITH SORTIS 10MG
  3. SORTIS [Concomitant]
     Active Substance: ATORVASTATIN
     Dosage: 10 MG, QPM,  0?0?1?0
  4. CONCOR [Concomitant]
     Active Substance: BISOPROLOL FUMARATE
     Dosage: 5 MG,  1?0?1?0
  5. CANDESARTAN. [Concomitant]
     Active Substance: CANDESARTAN
     Dosage: 16 MG, QAM, 1?0?0?0
  6. PHENPROCOUMON [Concomitant]
     Active Substance: PHENPROCOUMON
     Dosage: 3 MG

REACTIONS (3)
  - Hypertension [Recovering/Resolving]
  - Tachycardia [Recovering/Resolving]
  - Arrhythmia [Recovering/Resolving]
